FAERS Safety Report 20006013 (Version 1)
Quarter: 2021Q4

REPORT INFORMATION
  Report Type: Spontaneous
  Country: US (occurrence: US)
  Receive Date: 20211027
  Receipt Date: 20211027
  Transmission Date: 20220303
  Serious: Yes (Death)
  Sender: FDA-Public Use
  Company Number: None

PATIENT
  Sex: Male

DRUGS (2)
  1. GAMMAGARD LIQUID [Suspect]
     Active Substance: HUMAN IMMUNOGLOBULIN G
     Indication: Hypogammaglobulinaemia
     Dosage: ?OTHER DOSE:20 GM/200ML;??OTHER FREQUENCY:EVERY 42 DAYS;
     Route: 042
     Dates: start: 20200122
  2. GAMMAGARD LIQUID [Suspect]
     Active Substance: HUMAN IMMUNOGLOBULIN G
     Indication: Hypogammaglobulinaemia
     Dosage: ?          OTHER DOSE:5 GM/50ML;OTHER FREQUENCY:EVERY 42 DAYS;
     Route: 042
     Dates: start: 20200122

REACTIONS (1)
  - Death [None]
